FAERS Safety Report 8316977-8 (Version None)
Quarter: 2012Q2

REPORT INFORMATION
  Report Type: 
  Country: None (occurrence: None)
  Receive Date: 20120427
  Receipt Date: 20120416
  Transmission Date: 20120825
  Serious: Yes (Hospitalization, Other)
  Sender: FDA-Public Use
  Company Number: US-BAYER-2011-123870

PATIENT
  Age: 30 Year
  Sex: Female
  Weight: 81.633 kg

DRUGS (12)
  1. HYOSCYAMINE SULFATE [Concomitant]
     Dosage: UNK
     Dates: start: 20080318
  2. ZYRTEC [Concomitant]
  3. YAZ [Suspect]
     Dosage: UNK
     Dates: start: 20071118, end: 20080306
  4. HYDROCODONE BITARTRATE AND ACETAMINOPHEN [Concomitant]
     Dosage: UNK
     Dates: start: 20080312
  5. ALLERTEC [Concomitant]
  6. GLUCOSAMINE [Concomitant]
  7. LEVSIN PB [Concomitant]
  8. FISH OIL [Concomitant]
  9. VICODIN [Concomitant]
  10. MULTI-VITAMIN [Concomitant]
  11. IBUPROFEN [Concomitant]
  12. CALCIUM CITRATE [Concomitant]

REACTIONS (7)
  - CHOLELITHIASIS [None]
  - ANXIETY [None]
  - CHOLECYSTITIS CHRONIC [None]
  - GENERAL PHYSICAL HEALTH DETERIORATION [None]
  - ACNE CYSTIC [None]
  - ABDOMINAL PAIN UPPER [None]
  - EMOTIONAL DISTRESS [None]
